FAERS Safety Report 4876180-0 (Version None)
Quarter: 2006Q1

REPORT INFORMATION
  Report Type: 
  Country: None (occurrence: None)
  Receive Date: 20060110
  Receipt Date: 20060103
  Transmission Date: 20060701
  Serious: Yes (Other)
  Sender: FDA-Public Use
  Company Number: 2006UW00198

PATIENT
  Age: 42 Year
  Sex: Male

DRUGS (18)
  1. IRESSA [Suspect]
     Indication: NON-SMALL CELL LUNG CANCER
     Route: 048
     Dates: start: 20020905, end: 20020918
  2. CELEBREX [Concomitant]
  3. CHARCOAL, ACTIVATED [Concomitant]
  4. COLACE [Concomitant]
  5. FENTANYL [Concomitant]
  6. LASIX [Concomitant]
  7. HEPARIN [Concomitant]
  8. DILAUDID [Concomitant]
  9. LEVOFLOXACIN [Concomitant]
  10. ATIVAN [Concomitant]
  11. METHYLPREDNISOLONE [Concomitant]
  12. METRONIDAZOLE [Concomitant]
  13. PARACETAMOL [Concomitant]
  14. ZANTAC [Concomitant]
  15. SODIUM BIPHOSPHATE [Concomitant]
  16. SORBITOL [Concomitant]
  17. BACTRIM [Concomitant]
  18. SULFAMETHOXAZOLE + TRIMETHOPRIM [Concomitant]

REACTIONS (2)
  - CHEST X-RAY ABNORMAL [None]
  - PULMONARY EMBOLISM [None]
